FAERS Safety Report 10185068 (Version 1)
Quarter: 2014Q2

REPORT INFORMATION
  Report Type: Spontaneous
  Country: US (occurrence: None)
  Receive Date: 20140520
  Receipt Date: 20140520
  Transmission Date: 20141212
  Serious: No
  Sender: FDA-Public Use
  Company Number: None

PATIENT
  Age: 22 Year
  Sex: Female

DRUGS (1)
  1. VOLTAREN [Suspect]
     Indication: ARTHRITIS
     Dosage: 1-2 PILLS
     Route: 048

REACTIONS (4)
  - Dizziness [None]
  - Fatigue [None]
  - Palpitations [None]
  - Motor dysfunction [None]
